FAERS Safety Report 8162120-8 (Version None)
Quarter: 2012Q1

REPORT INFORMATION
  Report Type: 
  Country: None (occurrence: None)
  Receive Date: 20120224
  Receipt Date: 20111024
  Transmission Date: 20120608
  Serious: No
  Sender: FDA-Public Use
  Company Number: US-BRISTOL-MYERS SQUIBB COMPANY-16189201

PATIENT
  Age: 65 Year
  Sex: Female

DRUGS (3)
  1. GLIMEPIRIDE [Suspect]
  2. METFORMIN HCL [Suspect]
  3. LEVEMIR [Suspect]

REACTIONS (3)
  - RESPIRATORY DISORDER [None]
  - HYPOTENSION [None]
  - BLOOD GLUCOSE DECREASED [None]
